FAERS Safety Report 8957332 (Version 1)
Quarter: 2012Q4

REPORT INFORMATION
  Report Type: 
  Country: US (occurrence: US)
  Receive Date: 20121211
  Receipt Date: 20121211
  Transmission Date: 20130627
  Serious: Yes (Death)
  Sender: FDA-Public Use
  Company Number: US-PFIZER INC-2012309614

PATIENT
  Age: 60 Year
  Sex: Male

DRUGS (1)
  1. SUTENT [Suspect]
     Indication: CARCINOMA KIDNEY
     Dosage: 12.5 mg, UNK
     Dates: start: 20111010, end: 20120120

REACTIONS (2)
  - Disease progression [Fatal]
  - Renal cell carcinoma [Fatal]
